FAERS Safety Report 22533082 (Version 1)
Quarter: 2023Q2

REPORT INFORMATION
  Report Type: Spontaneous
  Country: US (occurrence: US)
  Receive Date: 20230607
  Receipt Date: 20230607
  Transmission Date: 20230721
  Serious: No
  Sender: FDA-Public Use
  Company Number: US-GALDERMA-US2023008236

PATIENT

DRUGS (11)
  1. PROACTIV MD ADAPALENE ACNE TREATMENT [Suspect]
     Active Substance: ADAPALENE
     Indication: Acne cystic
     Dosage: 1 DOSAGE FORM, QOD
     Route: 061
     Dates: start: 202304, end: 202304
  2. PROACTIV CLEAR SKIN SPF 30 [Concomitant]
     Active Substance: AVOBENZONE\OCTISALATE\OCTOCRYLENE
     Indication: Acne cystic
     Dosage: 1 DOSAGE FORM, QD
     Route: 061
     Dates: start: 202304
  3. PROACTIV CLEAR SKIN SPF 30 [Concomitant]
     Active Substance: AVOBENZONE\OCTISALATE\OCTOCRYLENE
     Dosage: 1 DOSAGE FORM, BID
     Route: 061
     Dates: end: 202304
  4. Proactiv MD Ultra Gentle Cleanser [Concomitant]
     Indication: Acne cystic
     Dosage: 1 DOSAGE FORM, QD
     Route: 061
     Dates: start: 202304
  5. Proactiv MD Ultra Gentle Cleanser [Concomitant]
     Dosage: 1 DOSAGE FORM, BID
     Route: 061
     Dates: end: 202304
  6. Proactiv MD Ultra Hydrating Moisturizer [Concomitant]
     Indication: Acne cystic
     Dosage: 1 DOSAGE FORM, QD
     Route: 061
     Dates: start: 202304
  7. Proactiv MD Ultra Hydrating Moisturizer [Concomitant]
     Dosage: 1 DOSAGE FORM, BID
     Route: 061
     Dates: end: 202304
  8. Proactiv Post Acne Dark Mark Relief [Concomitant]
     Indication: Acne cystic
     Dosage: 1 DOSAGE FORM, QD
     Route: 061
     Dates: start: 202304
  9. Proactiv Post Acne Dark Mark Relief [Concomitant]
     Dosage: 1 DOSAGE FORM, BID
     Route: 061
     Dates: end: 202304
  10. Proactiv Post Acne Scar Gel [Concomitant]
     Indication: Acne cystic
     Dosage: 1 DOSAGE FORM, QD
     Route: 061
     Dates: start: 202304
  11. Proactiv Post Acne Scar Gel [Concomitant]
     Dosage: 1 DOSAGE FORM, BID
     Route: 061
     Dates: end: 202304

REACTIONS (9)
  - Chemical burn of skin [Recovered/Resolved]
  - Acne [Recovered/Resolved]
  - Erythema [Recovered/Resolved]
  - Paraesthesia [Recovered/Resolved]
  - Dry skin [Recovered/Resolved]
  - Skin exfoliation [Recovered/Resolved]
  - Underdose [Recovered/Resolved]
  - Inappropriate schedule of product administration [Recovered/Resolved]
  - Product use in unapproved indication [Recovered/Resolved]

NARRATIVE: CASE EVENT DATE: 20230401
